FAERS Safety Report 6706270-9 (Version None)
Quarter: 2010Q2

REPORT INFORMATION
  Report Type: 
  Country: None (occurrence: None)
  Receive Date: 20100423
  Receipt Date: 20100121
  Transmission Date: 20101027
  Serious: No
  Sender: FDA-Public Use
  Company Number: ALL1-2010-00310

PATIENT
  Age: 8 Year
  Sex: Male
  Weight: 33.6 kg

DRUGS (1)
  1. VYVANSE [Suspect]
     Indication: ATTENTION DEFICIT/HYPERACTIVITY DISORDER
     Dosage: 30 MG, 1X/DAY;QD, ORAL
     Route: 048
     Dates: start: 20090601

REACTIONS (6)
  - AGGRESSION [None]
  - ANGER [None]
  - APATHY [None]
  - FRUSTRATION [None]
  - IRRITABILITY [None]
  - MOOD ALTERED [None]
